FAERS Safety Report 12612683 (Version 3)
Quarter: 2016Q3

REPORT INFORMATION
  Report Type: Report from Study
  Country: CO (occurrence: CO)
  Receive Date: 20160801
  Receipt Date: 20160912
  Transmission Date: 20161109
  Serious: Yes (Life-Threatening, Other)
  Sender: FDA-Public Use
  Company Number: PHHY2016CO104841

PATIENT
  Sex: Female
  Weight: 58 kg

DRUGS (2)
  1. VOTRIENT [Suspect]
     Active Substance: PAZOPANIB HYDROCHLORIDE
     Dosage: 400 MG, QD
     Route: 048
  2. VOTRIENT [Suspect]
     Active Substance: PAZOPANIB HYDROCHLORIDE
     Indication: RENAL CELL CARCINOMA
     Dosage: 400 MG, BID (02 TABLETS ONCE DAILY)
     Route: 048
     Dates: start: 20160619

REACTIONS (12)
  - Hypertension [Recovering/Resolving]
  - Abdominal pain [Unknown]
  - Hepatotoxicity [Unknown]
  - Hair colour changes [Unknown]
  - Skin lesion [Unknown]
  - Mucosal inflammation [Unknown]
  - Vomiting [Unknown]
  - Hepatic enzyme increased [Unknown]
  - Blister [Unknown]
  - Gait disturbance [Unknown]
  - Thrombocytopenia [Unknown]
  - Haematotoxicity [Unknown]
